FAERS Safety Report 7657506-1 (Version None)
Quarter: 2011Q3

REPORT INFORMATION
  Report Type: 
  Country: None (occurrence: None)
  Receive Date: 20110804
  Receipt Date: 20101126
  Transmission Date: 20111222
  Serious: Yes (Other)
  Sender: FDA-Public Use
  Company Number: PE-ASTRAZENECA-2011SE45229

PATIENT
  Age: 53 Year
  Sex: Female

DRUGS (1)
  1. ATACAND HCT [Suspect]
     Indication: HYPERTENSION
     Route: 048
     Dates: start: 20080518, end: 20101230

REACTIONS (3)
  - DRUG INEFFECTIVE [None]
  - RENAL DISORDER [None]
  - HYPERTENSION [None]
